FAERS Safety Report 8716519 (Version 3)
Quarter: 2014Q2

REPORT INFORMATION
  Report Type: Spontaneous
  Country: FR (occurrence: FR)
  Receive Date: 20120810
  Receipt Date: 20140625
  Transmission Date: 20141212
  Serious: Yes (Hospitalization, Other)
  Sender: FDA-Public Use
  Company Number: FR-AMGEN-FRASP2012038866

PATIENT
  Age: 55 Year
  Sex: Female

DRUGS (11)
  1. ENBREL [Suspect]
     Indication: RHEUMATOID ARTHRITIS
     Dosage: 50 MG, WEEKLY
     Route: 058
     Dates: start: 201010, end: 20110607
  2. ENBREL [Suspect]
     Dosage: 50 MG, WEEKLY
     Route: 058
     Dates: end: 201205
  3. NOVATREX                           /00113801/ [Suspect]
     Indication: POLYARTHRITIS
     Dosage: 15 MG, WEEKLY
     Route: 048
     Dates: start: 2007
  4. NOVATREX                           /00113801/ [Suspect]
     Dosage: 10 MG, QWK
     Route: 048
     Dates: start: 2007, end: 201010
  5. NOVATREX                           /00113801/ [Suspect]
     Dosage: 7.5 MG, QWK
     Route: 048
     Dates: start: 20101221
  6. FLECTOR                            /00372302/ [Concomitant]
     Dosage: 50 MG, 3X/DAY
     Route: 048
     Dates: start: 2007
  7. SPECIAFOLDINE [Concomitant]
     Dosage: UNK
  8. OGASTRO [Concomitant]
     Dosage: 15 MG, 1X/DAY
     Route: 048
     Dates: start: 201010
  9. LAMALINE                           /00764901/ [Concomitant]
     Dosage: UNK
     Dates: start: 2010
  10. SOLUMEDROL [Concomitant]
     Dosage: 3 G, UNK
  11. CORTISONE [Concomitant]
     Dosage: UNK
     Route: 040

REACTIONS (7)
  - Transient ischaemic attack [Unknown]
  - Sinus disorder [Unknown]
  - Pain [Recovered/Resolved]
  - Hemiparesis [Recovered/Resolved]
  - Drug ineffective [Unknown]
  - Multiple sclerosis [Unknown]
  - Demyelination [Recovered/Resolved]
